FAERS Safety Report 5120672-6 (Version None)
Quarter: 2006Q4

REPORT INFORMATION
  Report Type: 
  Country: None (occurrence: None)
  Receive Date: 20061003
  Receipt Date: 20061003
  Transmission Date: 20070319
  Serious: Yes (Other)
  Sender: FDA-Public Use
  Company Number: None

PATIENT
  Age: 56 Year
  Sex: Female
  Weight: 59.8748 kg

DRUGS (4)
  1. ACTONEL [Suspect]
     Indication: OSTEOPOROSIS
     Dosage: 35 MG /WEEKLY (1 DOSE)
     Dates: start: 20041116
  2. CLIMARA (ESTRODIAL TRANSDERMAL) [Concomitant]
  3. NORTRIPTYLINE HCL [Concomitant]
  4. NORCO (HYROCODONE/ACETAMINOPHEN) [Concomitant]

REACTIONS (4)
  - ABDOMINAL PAIN UPPER [None]
  - CHEST PAIN [None]
  - GASTRIC ULCER [None]
  - INFLAMMATION [None]
